FAERS Safety Report 9259961 (Version 1)
Quarter: 2013Q2

REPORT INFORMATION
  Report Type: Spontaneous
  Country: US (occurrence: US)
  Receive Date: 20130429
  Receipt Date: 20130429
  Transmission Date: 20140414
  Serious: Yes (Other)
  Sender: FDA-Public Use
  Company Number: US-JNJFOC-20130411514

PATIENT
  Sex: Male

DRUGS (4)
  1. KETOCONAZOLE [Suspect]
     Indication: TINEA INFECTION
     Route: 065
  2. XANAX [Interacting]
     Indication: PRODUCT USED FOR UNKNOWN INDICATION
     Route: 065
  3. XANAX [Interacting]
     Indication: PRODUCT USED FOR UNKNOWN INDICATION
     Route: 065
  4. EXELON [Suspect]
     Indication: PRODUCT USED FOR UNKNOWN INDICATION
     Route: 065

REACTIONS (8)
  - Delusion [Unknown]
  - Asthenia [Unknown]
  - Muscular weakness [Unknown]
  - Abasia [Unknown]
  - Dysstasia [Unknown]
  - Confusional state [Unknown]
  - Drug interaction [Unknown]
  - Abnormal behaviour [Unknown]
